FAERS Safety Report 9005946 (Version 1)
Quarter: 2013Q1

REPORT INFORMATION
  Report Type: Spontaneous
  Country: US (occurrence: US)
  Receive Date: 20130109
  Receipt Date: 20130109
  Transmission Date: 20140127
  Serious: Yes (Death)
  Sender: FDA-Public Use
  Company Number: US-PFIZER INC-2013006832

PATIENT
  Age: 24 Year
  Sex: Male

DRUGS (1)
  1. MORPHINE SULFATE [Suspect]

REACTIONS (1)
  - Drug abuse [Fatal]
